FAERS Safety Report 8784697 (Version 1)
Quarter: 2012Q4

REPORT INFORMATION
  Report Type: 
  Country: FR (occurrence: FR)
  Receive Date: 20120914
  Receipt Date: 20120914
  Transmission Date: 20130627
  Serious: Yes (Other)
  Sender: FDA-Public Use
  Company Number: FR-PFIZER INC-2012223824

PATIENT
  Sex: Female

DRUGS (1)
  1. AMLOR [Suspect]

REACTIONS (1)
  - Cognitive disorder [Unknown]
